FAERS Safety Report 23816259 (Version 1)
Quarter: 2024Q2

REPORT INFORMATION
  Report Type: Spontaneous
  Country: NZ (occurrence: None)
  Receive Date: 20240503
  Receipt Date: 20240503
  Transmission Date: 20240716
  Serious: Yes (Other)
  Sender: FDA-Public Use
  Company Number: 2024A099183

PATIENT
  Age: 51 Year
  Sex: Male

DRUGS (6)
  1. QUETIAPINE [Suspect]
     Active Substance: QUETIAPINE
     Route: 048
  2. METOPROLOL [Suspect]
     Active Substance: METOPROLOL
  3. ASPIRIN [Suspect]
     Active Substance: ASPIRIN
  4. QUINAPRIL [Suspect]
     Active Substance: QUINAPRIL
  5. CITALOPRAM [Suspect]
     Active Substance: CITALOPRAM\CITALOPRAM HYDROBROMIDE
  6. AMITRIPTYLINE [Suspect]
     Active Substance: AMITRIPTYLINE

REACTIONS (8)
  - Unresponsive to stimuli [Unknown]
  - Cardiotoxicity [Unknown]
  - Tonic clonic movements [Unknown]
  - Mydriasis [Unknown]
  - Tachycardia [Unknown]
  - Agitation [Unknown]
  - Intentional overdose [Unknown]
  - Patient uncooperative [Unknown]
